FAERS Safety Report 17917919 (Version 8)
Quarter: 2022Q3

REPORT INFORMATION
  Report Type: Spontaneous
  Country: US (occurrence: US)
  Receive Date: 20200619
  Receipt Date: 20220816
  Transmission Date: 20221027
  Serious: No
  Sender: FDA-Public Use
  Company Number: US-PFIZER INC-2019304817

PATIENT
  Age: 58 Year
  Sex: Female
  Weight: 74.39 kg

DRUGS (7)
  1. PRISTIQ EXTENDED-RELEASE [Suspect]
     Active Substance: DESVENLAFAXINE SUCCINATE
     Indication: Depression
     Dosage: 100 MG, 1X/DAY
     Route: 048
  2. PRISTIQ EXTENDED-RELEASE [Suspect]
     Active Substance: DESVENLAFAXINE SUCCINATE
     Dosage: 100 MG, 1X/DAY (100 MG AT NIGHT BEFORE BED BY MOUTH)
     Route: 048
  3. PRISTIQ EXTENDED-RELEASE [Suspect]
     Active Substance: DESVENLAFAXINE SUCCINATE
     Dosage: UNK
  4. PRISTIQ EXTENDED-RELEASE [Suspect]
     Active Substance: DESVENLAFAXINE SUCCINATE
     Dosage: 100MG ONE TIME A DAY
  5. ALPRAZOLAM [Concomitant]
     Active Substance: ALPRAZOLAM
     Indication: Anxiety
     Dosage: 1 MG
  6. ALPRAZOLAM [Concomitant]
     Active Substance: ALPRAZOLAM
     Indication: Panic attack
  7. ALLEGRA-D [FEXOFENADINE;PSEUDOEPHEDRINE HYDROCHLORIDE] [Concomitant]
     Indication: Hypersensitivity
     Dosage: 1 DF, DAILY(180 MG OF ANTIHISTAMINE AND 20 MG OF NASAL DECONGESTANT. ONE TABLET DAILY)

REACTIONS (7)
  - Intentional product misuse [Unknown]
  - Product prescribing error [Unknown]
  - Product dispensing error [Unknown]
  - Headache [Unknown]
  - Depression [Unknown]
  - Withdrawal syndrome [Unknown]
  - Anxiety [Unknown]
